FAERS Safety Report 24585361 (Version 1)
Quarter: 2024Q4

REPORT INFORMATION
  Report Type: Spontaneous
  Country: RO (occurrence: RO)
  Receive Date: 20241106
  Receipt Date: 20241106
  Transmission Date: 20250115
  Serious: Yes (Other)
  Sender: pharmaAND
  Company Number: RO-ROCHE-10000113911

PATIENT
  Age: 60 Year
  Sex: Male

DRUGS (1)
  1. PEGASYS [Suspect]
     Active Substance: PEGINTERFERON ALFA-2A
     Indication: Product used for unknown indication
     Route: 065

REACTIONS (9)
  - Leukopenia [Unknown]
  - Neutropenia [Unknown]
  - Thrombocytopenia [Unknown]
  - Splenomegaly [Unknown]
  - Varices oesophageal [Unknown]
  - Lymphopenia [Unknown]
  - Ascites [Unknown]
  - Fatigue [Unknown]
  - Therapeutic product effect decreased [Unknown]
